FAERS Safety Report 13611747 (Version 4)
Quarter: 2017Q2

REPORT INFORMATION
  Report Type: Spontaneous
  Country: ES (occurrence: ES)
  Receive Date: 20170605
  Receipt Date: 20170623
  Transmission Date: 20170830
  Serious: Yes (Other)
  Sender: FDA-Public Use
  Company Number: ES-ABBVIE-17K-144-1992433-00

PATIENT
  Age: 38 Year
  Sex: Male
  Weight: 96 kg

DRUGS (5)
  1. IMUREL [Concomitant]
     Active Substance: AZATHIOPRINE SODIUM
     Indication: CROHN^S DISEASE
     Route: 048
     Dates: start: 20151130, end: 20160309
  2. CALCIUM/VITAMIN D [Concomitant]
     Active Substance: CALCIUM\VITAMIN D
     Indication: PRODUCT USED FOR UNKNOWN INDICATION
  3. CEMIDON [Concomitant]
     Active Substance: ISONIAZID
     Indication: ANTIBIOTIC PROPHYLAXIS
     Route: 048
     Dates: start: 20150819
  4. HUMIRA [Suspect]
     Active Substance: ADALIMUMAB
     Indication: CROHN^S DISEASE
     Route: 058
     Dates: start: 20151019, end: 20151125
  5. PREDNISONA [Concomitant]
     Active Substance: PREDNISONE
     Indication: CROHN^S DISEASE
     Route: 048
     Dates: start: 20151130, end: 20160130

REACTIONS (15)
  - Muscular weakness [Recovering/Resolving]
  - Arthralgia [Unknown]
  - Hyperreflexia [Unknown]
  - Musculoskeletal discomfort [Unknown]
  - Dysaesthesia [Recovering/Resolving]
  - Fatigue [Unknown]
  - Arthralgia [Unknown]
  - Arthralgia [Unknown]
  - Muscle spasms [Recovering/Resolving]
  - Asthenia [Unknown]
  - Fall [Recovered/Resolved]
  - Peripheral sensory neuropathy [Recovering/Resolving]
  - Neuropathy peripheral [Not Recovered/Not Resolved]
  - Pain [Not Recovered/Not Resolved]
  - Myalgia [Unknown]

NARRATIVE: CASE EVENT DATE: 20151125
